FAERS Safety Report 7274756-7 (Version None)
Quarter: 2011Q1

REPORT INFORMATION
  Report Type: 
  Country: None (occurrence: None)
  Receive Date: 20110204
  Receipt Date: 20110126
  Transmission Date: 20110831
  Serious: Yes (Hospitalization)
  Sender: FDA-Public Use
  Company Number: AU-JNJFOC-20110103930

PATIENT
  Sex: Female

DRUGS (20)
  1. QUETIAPINE [Concomitant]
     Indication: SLEEP DISORDER THERAPY
     Route: 065
  2. GREEN TEA [Concomitant]
     Indication: PROPHYLAXIS
     Route: 065
  3. WILDFLOWER TABLETS [Concomitant]
     Indication: ROUTINE HEALTH MAINTENANCE
     Route: 065
  4. IRBESARTAN [Concomitant]
     Indication: HYPERTENSION
     Route: 065
  5. DULOXETINE [Concomitant]
     Indication: DEPRESSION
     Route: 065
  6. GASTROINTESTINAL AGENT [Concomitant]
     Indication: PROPHYLAXIS
     Route: 065
  7. UBIDECARENONE [Concomitant]
     Indication: PROPHYLAXIS
     Route: 065
  8. LOVAZA [Concomitant]
     Indication: PROPHYLAXIS
     Route: 065
  9. RESVERATROL [Concomitant]
     Indication: NEOPLASM PROPHYLAXIS
     Route: 065
  10. DOXIL [Suspect]
     Route: 042
  11. ERGOCALCIFEROL [Concomitant]
     Indication: ROUTINE HEALTH MAINTENANCE
     Route: 065
  12. OESTRACLEAR [Concomitant]
     Indication: ROUTINE HEALTH MAINTENANCE
     Route: 065
  13. APRICOT KERNEL [Concomitant]
     Indication: ROUTINE HEALTH MAINTENANCE
     Route: 065
  14. GREEN TEA [Concomitant]
     Indication: ROUTINE HEALTH MAINTENANCE
     Route: 065
  15. RESVERATROL [Concomitant]
     Indication: CARDIAC DISORDER
     Route: 065
  16. DOXIL [Suspect]
     Indication: OVARIAN CANCER
     Dosage: PARTIAL INFUSION
     Route: 042
  17. DEFENCE COMPLETE [Concomitant]
     Indication: ROUTINE HEALTH MAINTENANCE
     Route: 065
  18. LERCANIDIPINE [Concomitant]
     Indication: HYPERTENSION
     Route: 065
  19. GASTROINTESTINAL AGENT [Concomitant]
     Indication: ROUTINE HEALTH MAINTENANCE
     Route: 065
  20. LOVAZA [Concomitant]
     Indication: ROUTINE HEALTH MAINTENANCE
     Route: 065

REACTIONS (2)
  - HYPERSENSITIVITY [None]
  - MYOCARDIAL INFARCTION [None]
